FAERS Safety Report 20033084 (Version 3)
Quarter: 2021Q4

REPORT INFORMATION
  Report Type: Report from Study
  Country: GB (occurrence: GB)
  Receive Date: 20211104
  Receipt Date: 20211206
  Transmission Date: 20220303
  Serious: Yes (Death, Hospitalization, Other)
  Sender: FDA-Public Use
  Company Number: GB-TAKEDA-2021TUS067158

PATIENT
  Age: 74 Year
  Sex: Male

DRUGS (9)
  1. IXAZOMIB [Suspect]
     Active Substance: IXAZOMIB
     Indication: Plasma cell myeloma
     Dosage: UNK
     Route: 048
     Dates: start: 20210127, end: 20210924
  2. VELCADE [Suspect]
     Active Substance: BORTEZOMIB
     Indication: Plasma cell myeloma
     Dosage: UNK
     Route: 065
     Dates: start: 202002
  3. DEXAMETHASONE [Suspect]
     Active Substance: DEXAMETHASONE
     Indication: Plasma cell myeloma
     Dosage: UNK
     Route: 065
     Dates: start: 202002
  4. DEXAMETHASONE [Suspect]
     Active Substance: DEXAMETHASONE
     Dosage: UNK
     Route: 065
     Dates: start: 202101, end: 202109
  5. DEXAMETHASONE [Suspect]
     Active Substance: DEXAMETHASONE
     Dosage: UNK
     Route: 065
     Dates: start: 202109
  6. REVLIMID [Suspect]
     Active Substance: LENALIDOMIDE
     Indication: Plasma cell myeloma
     Dosage: UNK
     Route: 065
     Dates: start: 202101, end: 202109
  7. POMALIDOMIDE [Suspect]
     Active Substance: POMALIDOMIDE
     Indication: Plasma cell myeloma
     Dosage: UNK
     Route: 065
     Dates: start: 202109
  8. CYCLOPHOSPHAMIDE [Suspect]
     Active Substance: CYCLOPHOSPHAMIDE
     Indication: Plasma cell myeloma
     Dosage: UNK
     Route: 065
     Dates: start: 202109
  9. DARATUMUMAB [Suspect]
     Active Substance: DARATUMUMAB
     Indication: Plasma cell myeloma
     Dosage: UNK
     Route: 065
     Dates: start: 202002

REACTIONS (10)
  - Neutropenic sepsis [Fatal]
  - Thrombocytopenia [Unknown]
  - Acute kidney injury [Recovered/Resolved]
  - Melaena [Recovered/Resolved]
  - Pleural effusion [Not Recovered/Not Resolved]
  - Dyspnoea exertional [Recovered/Resolved]
  - Plasma cell myeloma recurrent [Not Recovered/Not Resolved]
  - Human rhinovirus test positive [Recovered/Resolved]
  - Musculoskeletal pain [Not Recovered/Not Resolved]
  - Back pain [Unknown]

NARRATIVE: CASE EVENT DATE: 20210907
